FAERS Safety Report 6327973-4 (Version None)
Quarter: 2009Q3

REPORT INFORMATION
  Report Type: 
  Country: None (occurrence: None)
  Receive Date: 20090824
  Receipt Date: 20090812
  Transmission Date: 20100115
  Serious: Yes (Hospitalization)
  Sender: FDA-Public Use
  Company Number: PAR_02420_2008

PATIENT
  Sex: Male
  Weight: 54 kg

DRUGS (9)
  1. MESALAMINE [Suspect]
     Indication: COLITIS ULCERATIVE
     Dosage: (2.4 G QD ORAL)
     Route: 048
     Dates: start: 20081105
  2. ROZO [Concomitant]
  3. CROCIN [Concomitant]
  4. RABIUM [Concomitant]
  5. MECOREURON [Concomitant]
  6. FOHITE [Concomitant]
  7. LEVOCETZINE [Concomitant]
  8. AMARYL [Concomitant]
  9. GLUCOPHAGE [Concomitant]

REACTIONS (12)
  - ANXIETY [None]
  - ASTHENIA [None]
  - BLOOD GLUCOSE INCREASED [None]
  - BLOOD POTASSIUM DECREASED [None]
  - BLOOD SODIUM DECREASED [None]
  - CONDITION AGGRAVATED [None]
  - DECREASED APPETITE [None]
  - HAEMOGLOBIN DECREASED [None]
  - HYPOPHAGIA [None]
  - NAUSEA [None]
  - PLATELET COUNT INCREASED [None]
  - PYREXIA [None]
